FAERS Safety Report 19855889 (Version 1)
Quarter: 2021Q3

REPORT INFORMATION
  Report Type: Spontaneous
  Country: GB (occurrence: GB)
  Receive Date: 20210920
  Receipt Date: 20210920
  Transmission Date: 20211014
  Serious: Yes (Disabling, Other)
  Sender: FDA-Public Use
  Company Number: GB-TEVA-2021-GB-1953585

PATIENT
  Age: 39 Year
  Sex: Female
  Weight: 101.6 kg

DRUGS (4)
  1. ASPIRIN COATED [Concomitant]
     Active Substance: ASPIRIN
  2. OMEPRAZOL [Concomitant]
     Active Substance: OMEPRAZOLE
  3. AJOVY [Suspect]
     Active Substance: FREMANEZUMAB-VFRM
     Indication: MIGRAINE
     Dosage: 225MG
     Route: 051
     Dates: start: 20210120, end: 20210430
  4. ZOMIG [Concomitant]
     Active Substance: ZOLMITRIPTAN

REACTIONS (2)
  - Insomnia [Recovering/Resolving]
  - Arthralgia [Recovering/Resolving]

NARRATIVE: CASE EVENT DATE: 20210204
